FAERS Safety Report 13145102 (Version 1)
Quarter: 2017Q1

REPORT INFORMATION
  Report Type: Spontaneous
  Country: US (occurrence: US)
  Receive Date: 20170124
  Receipt Date: 20170124
  Transmission Date: 20170428
  Serious: No
  Sender: FDA-Public Use
  Company Number: US-GALDERMA-US16001570

PATIENT
  Age: 63 Year
  Sex: Female

DRUGS (1)
  1. DESONIDE (DESONIDE) 0.05% [Suspect]
     Active Substance: DESONIDE
     Indication: DRY SKIN
     Dosage: 0.05%
     Route: 061
     Dates: start: 20160213

REACTIONS (5)
  - Condition aggravated [Unknown]
  - Intentional product misuse [Unknown]
  - Flatulence [Unknown]
  - Abdominal discomfort [Unknown]
  - Abdominal pain upper [Unknown]

NARRATIVE: CASE EVENT DATE: 20160213
